FAERS Safety Report 10143643 (Version 2)
Quarter: 2014Q2

REPORT INFORMATION
  Report Type: Spontaneous
  Country: US (occurrence: US)
  Receive Date: 20140430
  Receipt Date: 20140507
  Transmission Date: 20141212
  Serious: No
  Sender: FDA-Public Use
  Company Number: US-PFIZER INC-2014117428

PATIENT
  Age: 76 Year
  Sex: Male

DRUGS (5)
  1. INLYTA [Suspect]
     Indication: RENAL CANCER
     Dosage: 5 MG, UNK
     Dates: start: 20140409
  2. AMLODIPINE-ATORVASTATIN [Concomitant]
     Dosage: UNK
  3. DIOVAN [Concomitant]
     Dosage: UNK
  4. EXFORGE [Concomitant]
     Dosage: UNK
  5. MICARDIS [Concomitant]
     Dosage: UNK

REACTIONS (3)
  - Oropharyngeal pain [Unknown]
  - Constipation [Unknown]
  - Dysphonia [Unknown]
